FAERS Safety Report 9375530 (Version 2)
Quarter: 2013Q3

REPORT INFORMATION
  Report Type: Report from Study
  Country: CA (occurrence: CA)
  Receive Date: 20130628
  Receipt Date: 20130814
  Transmission Date: 20140515
  Serious: Yes (Other)
  Sender: FDA-Public Use
  Company Number: PHHY2013CA067022

PATIENT
  Age: 65 Year
  Sex: Female

DRUGS (4)
  1. ACLASTA [Suspect]
     Indication: OSTEOPOROSIS
     Dosage: UNK UKN, ONCE A YEAR
     Route: 042
     Dates: start: 20120425
  2. ACLASTA [Suspect]
     Dosage: UNK UKN, ONCE A YEAR
     Route: 042
     Dates: start: 201306
  3. VITAMIN D3 [Concomitant]
     Dosage: 3000 IU, DAILY
  4. IMOVANE [Concomitant]
     Dosage: 0.5 DF, PRN

REACTIONS (4)
  - Pulmonary embolism [Recovered/Resolved]
  - Dyspnoea [Recovered/Resolved]
  - Arthropod bite [Recovered/Resolved]
  - Local swelling [Recovered/Resolved]
